FAERS Safety Report 19612309 (Version 1)
Quarter: 2021Q3

REPORT INFORMATION
  Report Type: Spontaneous
  Country: US (occurrence: US)
  Receive Date: 20210726
  Receipt Date: 20210726
  Transmission Date: 20211014
  Serious: No
  Sender: FDA-Public Use
  Company Number: US-009507513-2107USA006495

PATIENT
  Age: 57 Year
  Sex: Female

DRUGS (1)
  1. TEMODAR [Suspect]
     Active Substance: TEMOZOLOMIDE
     Indication: LUNG ADENOCARCINOMA STAGE IV
     Dosage: UNK

REACTIONS (1)
  - Product use in unapproved indication [Unknown]
